FAERS Safety Report 17070987 (Version 2)
Quarter: 2020Q1

REPORT INFORMATION
  Report Type: Spontaneous
  Country: US (occurrence: US)
  Receive Date: 20191125
  Receipt Date: 20200121
  Transmission Date: 20200409
  Serious: Yes (Other)
  Sender: FDA-Public Use
  Company Number: US-PFIZER INC-2019503922

PATIENT
  Age: 69 Year

DRUGS (2)
  1. PREMARIN [Suspect]
     Active Substance: ESTROGENS, CONJUGATED
     Indication: VULVOVAGINAL DRYNESS
     Dosage: UNK
  2. PREMARIN [Suspect]
     Active Substance: ESTROGENS, CONJUGATED

REACTIONS (2)
  - Breast cancer [Unknown]
  - Product dispensing error [Unknown]
